FAERS Safety Report 10300373 (Version 1)
Quarter: 2014Q3

REPORT INFORMATION
  Report Type: Spontaneous
  Country: JP (occurrence: JP)
  Receive Date: 20140712
  Receipt Date: 20140712
  Transmission Date: 20150326
  Serious: No
  Sender: FDA-Public Use
  Company Number: PHHY2013JP158236

PATIENT
  Sex: Male

DRUGS (3)
  1. SPRYCEL [Suspect]
     Active Substance: DASATINIB
     Dosage: 50 MG, UNK
  2. TASIGNA [Suspect]
     Active Substance: NILOTINIB
     Dosage: 600 MG, UNK
  3. SPRYCEL [Suspect]
     Active Substance: DASATINIB
     Dosage: 100 MG, UNK

REACTIONS (3)
  - Pleural effusion [Unknown]
  - Dysphonia [Unknown]
  - Rash [Unknown]
